FAERS Safety Report 5777036 (Version 4)
Quarter: 2015Q3

REPORT INFORMATION
  Report Type: Spontaneous
  Country: ES (occurrence: ES)
  Receive Date: 20050418
  Receipt Date: 20150724
  Transmission Date: 20151125
  Serious: Yes (Death)
  Sender: FDA-Public Use
  Company Number: ES-AMGEN-UK125742

PATIENT
  Age: 87 Year
  Sex: Male

DRUGS (9)
  1. ARANESP [Suspect]
     Active Substance: DARBEPOETIN ALFA
     Indication: ANAEMIA OF MALIGNANT DISEASE
     Dosage: 150 MUG, QWK
     Route: 058
     Dates: start: 20030618, end: 20030903
  2. ALLOPURINOL. [Concomitant]
     Active Substance: ALLOPURINOL
     Dosage: 300 MG, QD
     Route: 048
     Dates: end: 20030915
  3. IRON [Concomitant]
     Active Substance: IRON
     Dosage: 40 MG, QD
     Route: 048
     Dates: start: 20030618, end: 20030903
  4. NIFEDIPINE. [Concomitant]
     Active Substance: NIFEDIPINE
     Dosage: UNK
     Route: 048
     Dates: end: 20030915
  5. HYOSCINE BUTYLBROMIDE [Concomitant]
     Active Substance: BUTYLSCOPOLAMINE
     Dosage: UNK
     Route: 048
     Dates: start: 20030904, end: 20030912
  6. METFORMIN [Concomitant]
     Active Substance: METFORMIN HYDROCHLORIDE
     Dosage: UNK UNK, UNK
     Route: 048
     Dates: end: 20030915
  7. OMEPRAZOLE. [Concomitant]
     Active Substance: OMEPRAZOLE
     Dosage: UNK
     Route: 048
     Dates: start: 20030904, end: 20030915
  8. LOPERAMIDE [Concomitant]
     Active Substance: LOPERAMIDE
     Dosage: UNK UNK, UNK
     Route: 048
     Dates: start: 20030904, end: 20030909
  9. GLUTAMIC ACID [Concomitant]
     Active Substance: GLUTAMIC ACID
     Dosage: UNK
     Route: 048
     Dates: start: 20030904, end: 20030911

REACTIONS (1)
  - Aortic aneurysm rupture [Fatal]

NARRATIVE: CASE EVENT DATE: 20030915
